FAERS Safety Report 7211957-8 (Version None)
Quarter: 2011Q1

REPORT INFORMATION
  Report Type: 
  Country: None (occurrence: None)
  Receive Date: 20110106
  Receipt Date: 20101228
  Transmission Date: 20110831
  Serious: No
  Sender: FDA-Public Use
  Company Number: US-BIOGENIDEC-2011BI000366

PATIENT
  Age: 58 Year
  Sex: Female

DRUGS (3)
  1. AVONEX [Concomitant]
     Indication: MULTIPLE SCLEROSIS
     Route: 030
     Dates: start: 20040324
  2. TYSABRI [Suspect]
     Indication: MULTIPLE SCLEROSIS
     Route: 042
     Dates: start: 20080118
  3. TYSABRI [Suspect]
     Route: 042
     Dates: start: 20070515, end: 20071102

REACTIONS (4)
  - DRUG INEFFECTIVE [None]
  - ASTHENIA [None]
  - FATIGUE [None]
  - MULTIPLE ALLERGIES [None]
